FAERS Safety Report 6004654-8 (Version None)
Quarter: 2008Q4

REPORT INFORMATION
  Report Type: 
  Country: None (occurrence: None)
  Receive Date: 20081216
  Receipt Date: 20081204
  Transmission Date: 20090506
  Serious: Yes (Other)
  Sender: FDA-Public Use
  Company Number: ES-PFIZER INC-2008152634

PATIENT

DRUGS (2)
  1. LYRICA [Suspect]
     Dosage: 75 MG, 2X/DAY
     Route: 048
     Dates: start: 20081126, end: 20081128
  2. SUMIAL [Concomitant]
     Route: 048

REACTIONS (4)
  - DIZZINESS [None]
  - EYE SWELLING [None]
  - OEDEMA PERIPHERAL [None]
  - SWELLING FACE [None]
